FAERS Safety Report 13257675 (Version 1)
Quarter: 2017Q1

REPORT INFORMATION
  Report Type: Report from Study
  Country: None (occurrence: DE)
  Receive Date: 20170221
  Receipt Date: 20170221
  Transmission Date: 20170428
  Serious: Yes (Other)
  Sender: FDA-Public Use
  Company Number: DE-ABBVIE-17P-062-1880701-00

PATIENT
  Sex: Male

DRUGS (2)
  1. DUODOPA [Suspect]
     Active Substance: CARBIDOPA\LEVODOPA
     Dosage: NOT YET DETERMINED, PATIENT IS IN ADJUSTMENT PHASE
     Route: 050
     Dates: start: 20170214
  2. DUODOPA [Suspect]
     Active Substance: CARBIDOPA\LEVODOPA
     Indication: PARKINSON^S DISEASE
     Dosage: NOT YET DETERMINED, PATIENT IS IN ADJUSTMENT PHASE
     Route: 050
     Dates: start: 20170213, end: 20170214

REACTIONS (2)
  - Haematemesis [Recovering/Resolving]
  - Heart injury [Recovering/Resolving]

NARRATIVE: CASE EVENT DATE: 20170214
